FAERS Safety Report 4336304-0 (Version None)
Quarter: 2004Q2

REPORT INFORMATION
  Report Type: 
  Country: None (occurrence: None)
  Receive Date: 20040407
  Receipt Date: 20040319
  Transmission Date: 20050107
  Serious: Yes (Other)
  Sender: FDA-Public Use
  Company Number: USA040362527

PATIENT
  Age: 64 Year
  Sex: Female

DRUGS (6)
  1. XIGRIS [Suspect]
     Indication: SEPSIS
     Dosage: 40 MG/H
  2. LEVOPHED [Concomitant]
  3. VASOPRESSIN [Concomitant]
  4. DOBUTAMINE [Concomitant]
  5. CLINDAMYCIN HCL [Concomitant]
  6. CEFTRIAXONE [Concomitant]

REACTIONS (2)
  - INTERNATIONAL NORMALISED RATIO INCREASED [None]
  - PROTHROMBIN TIME PROLONGED [None]
